FAERS Safety Report 9505556 (Version 1)
Quarter: 2013Q1

REPORT INFORMATION
  Report Type: Spontaneous
  Country: US (occurrence: None)
  Receive Date: 20130220
  Receipt Date: 20130220
  Transmission Date: 20140127
  Serious: No
  Sender: FDA-Public Use
  Company Number: 1000041553

PATIENT
  Age: 46 Year
  Sex: Female

DRUGS (3)
  1. VIIBYRD (VILAZODONE HYDROCHLORIDE) [Suspect]
     Indication: DEPRESSION
     Route: 048
     Dates: start: 20121215, end: 20121221
  2. VIIBYRD (VILAZODONE HYDROCHLORIDE) [Suspect]
     Indication: MENOPAUSE
     Route: 048
     Dates: start: 20121215, end: 20121221
  3. REQUIP (ROPINIROLE HYDROCHLORIDE) (ROPINIROLE HYDROCHLORIDE) [Concomitant]

REACTIONS (3)
  - Paraesthesia [None]
  - Anxiety [None]
  - Nausea [None]
